FAERS Safety Report 5756516-9 (Version None)
Quarter: 2008Q2

REPORT INFORMATION
  Report Type: 
  Country: None (occurrence: None)
  Receive Date: 20080603
  Receipt Date: 20080522
  Transmission Date: 20081010
  Serious: Yes (Hospitalization)
  Sender: FDA-Public Use
  Company Number: JP-JNJFOC-20080505263

PATIENT
  Age: 23 Year
  Sex: Female

DRUGS (2)
  1. ITRIZOLE [Suspect]
     Indication: FUNGAL INFECTION
     Route: 048
  2. TACROLIMUS [Interacting]
     Indication: DRUG USE FOR UNKNOWN INDICATION

REACTIONS (1)
  - DRUG INTERACTION [None]
